FAERS Safety Report 5405513-1 (Version None)
Quarter: 2007Q3

REPORT INFORMATION
  Report Type: 
  Country: None (occurrence: None)
  Receive Date: 20070803
  Receipt Date: 20070724
  Transmission Date: 20080115
  Serious: Yes (Other)
  Sender: FDA-Public Use
  Company Number: US-PFIZER INC-2007061473

PATIENT
  Sex: Female
  Weight: 72.272 kg

DRUGS (5)
  1. LYRICA [Suspect]
     Indication: FIBROMYALGIA
     Dosage: DAILY DOSE:150MG-FREQ:EVERYDAY
     Route: 048
     Dates: start: 20070703, end: 20070718
  2. ZOLPIDEM TARTRATE [Concomitant]
  3. PROVIGIL [Concomitant]
  4. CLONAZEPAM [Concomitant]
  5. ALL OTHER THERAPEUTIC PRODUCTS [Concomitant]

REACTIONS (8)
  - ACTIVITIES OF DAILY LIVING IMPAIRED [None]
  - AMNESIA [None]
  - DEPRESSION [None]
  - DISTURBANCE IN ATTENTION [None]
  - DROOLING [None]
  - DRUG INEFFECTIVE [None]
  - READING DISORDER [None]
  - SOMNOLENCE [None]
